FAERS Safety Report 13195179 (Version 1)
Quarter: 2017Q1

REPORT INFORMATION
  Report Type: Spontaneous
  Country: US (occurrence: US)
  Receive Date: 20170208
  Receipt Date: 20170208
  Transmission Date: 20170428
  Serious: No
  Sender: FDA-Public Use
  Company Number: US-ASTRAZENECA-2017SE12003

PATIENT
  Age: 22276 Day
  Sex: Female
  Weight: 113.9 kg

DRUGS (5)
  1. BYDUREON [Suspect]
     Active Substance: EXENATIDE
     Indication: TYPE 2 DIABETES MELLITUS
     Route: 058
     Dates: start: 20170120
  2. BYDUREON [Suspect]
     Active Substance: EXENATIDE
     Indication: WEIGHT DECREASED
     Route: 058
     Dates: start: 20170120
  3. CRANBERRY. [Concomitant]
     Active Substance: CRANBERRY
     Indication: PROPHYLAXIS URINARY TRACT INFECTION
     Route: 048
     Dates: start: 2012
  4. MILK THISTLE [Concomitant]
     Active Substance: MILK THISTLE
     Indication: LIVER DISORDER
     Route: 048
     Dates: start: 2012
  5. FLAXSEED [Concomitant]
     Active Substance: FLAX SEED
     Indication: CARDIAC DISORDER
     Route: 048
     Dates: start: 2012

REACTIONS (12)
  - Atrial natriuretic peptide increased [Unknown]
  - Injection site pain [Unknown]
  - Off label use [Not Recovered/Not Resolved]
  - Weight increased [Recovered/Resolved]
  - Therapeutic response unexpected [Unknown]
  - Eosinophil count increased [Unknown]
  - Injection site bruising [Unknown]
  - Pain in extremity [Unknown]
  - Neutrophil count decreased [Unknown]
  - Peripheral swelling [Unknown]
  - Cardiac failure congestive [Unknown]
  - Joint swelling [Unknown]

NARRATIVE: CASE EVENT DATE: 20170120
